FAERS Safety Report 20219323 (Version 4)
Quarter: 2022Q1

REPORT INFORMATION
  Report Type: Report from Study
  Country: NO (occurrence: NO)
  Receive Date: 20211222
  Receipt Date: 20220118
  Transmission Date: 20220423
  Serious: Yes (Hospitalization)
  Sender: FDA-Public Use
  Company Number: NO-GLAXOSMITHKLINE-NO2021GSK064096

PATIENT
  Age: 73 Year
  Sex: Female
  Weight: 58.5 kg

DRUGS (7)
  1. DOSTARLIMAB [Suspect]
     Active Substance: DOSTARLIMAB
     Indication: Endometrial cancer
     Dosage: 500 MG
     Dates: start: 20201112, end: 20201112
  2. DOSTARLIMAB [Suspect]
     Active Substance: DOSTARLIMAB
     Dosage: 500 MG
     Dates: start: 20210311, end: 20210311
  3. CARBOPLATIN [Suspect]
     Active Substance: CARBOPLATIN
     Indication: Endometrial cancer
     Dosage: 5 AUC
     Route: 042
     Dates: start: 20201112, end: 20201112
  4. CARBOPLATIN [Suspect]
     Active Substance: CARBOPLATIN
     Dosage: 430 AUC
     Route: 042
     Dates: start: 20210311, end: 20210311
  5. PACLITAXEL [Suspect]
     Active Substance: PACLITAXEL
     Indication: Endometrial cancer
     Dosage: 175 MG/M2
     Route: 042
     Dates: start: 20201112, end: 20201112
  6. PACLITAXEL [Suspect]
     Active Substance: PACLITAXEL
     Dosage: 175 MG/M2
     Route: 042
     Dates: start: 20210121, end: 20210121
  7. PACLITAXEL [Suspect]
     Active Substance: PACLITAXEL
     Dosage: UNK
     Route: 042
     Dates: start: 20210210, end: 20210210

REACTIONS (1)
  - Dehydration [Recovered/Resolved]

NARRATIVE: CASE EVENT DATE: 20210313
